FAERS Safety Report 11648349 (Version 2)
Quarter: 2015Q4

REPORT INFORMATION
  Report Type: Spontaneous
  Country: HU (occurrence: HU)
  Receive Date: 20151021
  Receipt Date: 20151125
  Transmission Date: 20160304
  Serious: Yes (Death)
  Sender: FDA-Public Use
  Company Number: HU-PFIZER INC-2015341183

PATIENT
  Age: 56 Year
  Sex: Female

DRUGS (3)
  1. XALKORI [Suspect]
     Active Substance: CRIZOTINIB
     Dosage: 250 MG, 1X DAY
     Route: 048
  2. XALKORI [Suspect]
     Active Substance: CRIZOTINIB
     Indication: LUNG ADENOCARCINOMA
     Dosage: 250 MG, 2X/DAY
     Route: 048
  3. HYDROCODIN [Concomitant]
     Active Substance: DIHYDROCODEINE BITARTRATE
     Indication: ANTITUSSIVE THERAPY

REACTIONS (5)
  - Hepatic enzyme increased [Not Recovered/Not Resolved]
  - Lung adenocarcinoma [Fatal]
  - Nausea [Not Recovered/Not Resolved]
  - Disease progression [Fatal]
  - Vomiting [Not Recovered/Not Resolved]
